FAERS Safety Report 18336454 (Version 1)
Quarter: 2020Q4

REPORT INFORMATION
  Report Type: Spontaneous
  Country: FR (occurrence: FR)
  Receive Date: 20201001
  Receipt Date: 20201001
  Transmission Date: 20210113
  Serious: Yes (Other)
  Sender: FDA-Public Use
  Company Number: FR-ASCEND THERAPEUTICS US, LLC-2092359

PATIENT
  Age: 71 Year
  Sex: Female
  Weight: 64 kg

DRUGS (8)
  1. ESTROGEL [Suspect]
     Active Substance: ESTRADIOL
  2. PYOSTACINE (PRISTINAMYCIN) [Suspect]
     Active Substance: PRISTINAMYCIN
     Route: 065
     Dates: start: 202009
  3. PYOSTACINE (PRISTINAMYCIN) [Suspect]
     Active Substance: PRISTINAMYCIN
     Route: 065
     Dates: start: 1985
  4. KARDEGIC (ACETYLSALICYCLATE LYSINE), UNK [Concomitant]
     Route: 065
  5. ALDACTONE [Concomitant]
     Active Substance: SPIRONOLACTONE
     Route: 065
  6. ESTROGEL [Suspect]
     Active Substance: ESTRADIOL
     Indication: PRODUCT USED FOR UNKNOWN INDICATION
     Route: 065
  7. DURAGESIC (FENTANYL SYSTEM), UNK [Concomitant]
     Route: 065
  8. ESTRADIOL, NOS (ESTRADIOL) [Suspect]
     Active Substance: ESTRADIOL
     Route: 065

REACTIONS (16)
  - Skin exfoliation [Unknown]
  - Angioedema [Unknown]
  - Mucosal discolouration [Unknown]
  - COVID-19 [Unknown]
  - Abdominal distension [Unknown]
  - Condition aggravated [Unknown]
  - Skin disorder [Unknown]
  - Blister [Unknown]
  - Dry eye [Unknown]
  - Gait disturbance [Unknown]
  - Muscular weakness [Unknown]
  - Aptyalism [Unknown]
  - Dyspepsia [Unknown]
  - External ear disorder [Unknown]
  - Vasodilatation [Unknown]
  - Rash [Unknown]
